FAERS Safety Report 7298010-2 (Version None)
Quarter: 2011Q1

REPORT INFORMATION
  Report Type: 
  Country: None (occurrence: None)
  Receive Date: 20110217
  Receipt Date: 20110215
  Transmission Date: 20110831
  Serious: No
  Sender: FDA-Public Use
  Company Number: US-PFIZER INC-2011033674

PATIENT
  Sex: Female

DRUGS (2)
  1. LIPITOR [Suspect]
     Dosage: SPIT THE TABLETS TO TAKE 1/2 A 40 MG TABLET
  2. LIPITOR [Suspect]
     Dosage: 80 MG

REACTIONS (4)
  - CONSTIPATION [None]
  - ABDOMINAL PAIN UPPER [None]
  - MUSCULAR WEAKNESS [None]
  - NAUSEA [None]
